FAERS Safety Report 6522770-9 (Version None)
Quarter: 2009Q4

REPORT INFORMATION
  Report Type: 
  Country: None (occurrence: None)
  Receive Date: 20091230
  Receipt Date: 20091228
  Transmission Date: 20100525
  Serious: Yes (Death, Hospitalization)
  Sender: FDA-Public Use
  Company Number: US-CELGENEUS-163-20785-09122296

PATIENT
  Sex: Male

DRUGS (7)
  1. THALOMID [Suspect]
     Indication: MULTIPLE MYELOMA
     Route: 048
     Dates: start: 20091208, end: 20091215
  2. THALOMID [Suspect]
     Route: 048
     Dates: start: 20060601, end: 20060801
  3. THALOMID [Suspect]
     Route: 048
     Dates: start: 20060801, end: 20090501
  4. THALOMID [Suspect]
     Route: 048
     Dates: start: 20090501
  5. DILANTIN [Concomitant]
     Indication: DRUG USE FOR UNKNOWN INDICATION
     Route: 065
  6. LASIX [Concomitant]
     Indication: DRUG USE FOR UNKNOWN INDICATION
     Route: 065
  7. LIPITOR [Concomitant]
     Indication: DRUG USE FOR UNKNOWN INDICATION
     Route: 065

REACTIONS (6)
  - DEATH [None]
  - DRUG INTOLERANCE [None]
  - DYSPNOEA [None]
  - HAEMORRHAGE [None]
  - MYELOMA RECURRENCE [None]
  - NEUROPATHY PERIPHERAL [None]
